FAERS Safety Report 9340229 (Version 1)
Quarter: 2013Q2

REPORT INFORMATION
  Report Type: Spontaneous
  Country: GB (occurrence: None)
  Receive Date: 20130605
  Receipt Date: 20130605
  Transmission Date: 20140414
  Serious: Yes (Death, Other)
  Sender: FDA-Public Use
  Company Number: CL-492-2013

PATIENT
  Age: 53 Year
  Sex: Female

DRUGS (2)
  1. HALOPERIDOL [Suspect]
     Route: 048
  2. ZOTEPINE [Suspect]
     Route: 048

REACTIONS (4)
  - Gastrointestinal necrosis [None]
  - Overdose [None]
  - Oesophageal ulcer [None]
  - Toxicity to various agents [None]
